FAERS Safety Report 6907619-4 (Version None)
Quarter: 2010Q3

REPORT INFORMATION
  Report Type: 
  Country: None (occurrence: None)
  Receive Date: 20100802
  Receipt Date: 20100722
  Transmission Date: 20110219
  Serious: Yes (Other)
  Sender: FDA-Public Use
  Company Number: GER/UKI/10/0014584

PATIENT
  Age: 50 Year
  Sex: Male

DRUGS (12)
  1. FLUCONAZOLE [Suspect]
     Indication: PROPHYLAXIS
     Dosage: 50 MG
  2. AZITHROMYCIN [Suspect]
     Indication: PROPHYLAXIS
     Dosage: 1250 MG
  3. PREDNISOLONE [Suspect]
     Indication: PLASMABLASTIC LYMPHOMA
  4. ACYCLOVIR [Suspect]
     Indication: PROPHYLAXIS
     Dosage: 40 MG
  5. CYCLOPHOSPHAMIDE [Suspect]
     Indication: LYMPHOMA
  6. DARUNAVIR (DARUNAVIR) [Suspect]
     Indication: HIV INFECTION
  7. DOXORUBICIN HCL [Suspect]
     Indication: PLASMABLASTIC LYMPHOMA
  8. EMTRICITABINE [Suspect]
     Indication: HIV INFECTION
  9. RITONAVIR [Suspect]
     Indication: HIV INFECTION
  10. TENOFOVIR DISOPROXIL FUMARATE [Suspect]
     Indication: HIV INFECTION
  11. VINCRISTINE [Suspect]
     Indication: PLASMABLASTIC LYMPHOMA
  12. TRIMETHOPRIM + SULFAMETHOXAZOLE [Concomitant]

REACTIONS (7)
  - COUGH [None]
  - CYTOMEGALOVIRUS INFECTION [None]
  - DIARRHOEA [None]
  - DYSPNOEA [None]
  - FEBRILE NEUTROPENIA [None]
  - NEUTROPENIC SEPSIS [None]
  - RETINITIS [None]
